FAERS Safety Report 4627010-3 (Version None)
Quarter: 2005Q1

REPORT INFORMATION
  Report Type: 
  Country: None (occurrence: None)
  Receive Date: 20050331
  Receipt Date: 20050318
  Transmission Date: 20050727
  Serious: No
  Sender: FDA-Public Use
  Company Number: 2004UW23115

PATIENT
  Age: 57 Year
  Sex: Female
  Weight: 89.3586 kg

DRUGS (7)
  1. ARIMIDEX [Suspect]
     Indication: BREAST CANCER
     Dosage: 2.5 MG QD PO
     Route: 048
     Dates: start: 20041004, end: 20041020
  2. ATENOLOL [Concomitant]
  3. VERAPAMIL [Concomitant]
  4. LEVOXYL [Concomitant]
  5. PSEUDOEPHED [Concomitant]
  6. ADVIL [Concomitant]
  7. SYNTHROID [Concomitant]

REACTIONS (9)
  - ARTHRITIS [None]
  - CATARACT SUBCAPSULAR [None]
  - DIABETIC RETINOPATHY [None]
  - HOT FLUSH [None]
  - METAMORPHOPSIA [None]
  - RETINAL HAEMORRHAGE [None]
  - RETINAL VASCULAR DISORDER [None]
  - RETINAL VEIN OCCLUSION [None]
  - VITREOUS FLOATERS [None]
